FAERS Safety Report 6642747-2 (Version None)
Quarter: 2010Q1

REPORT INFORMATION
  Report Type: 
  Country: None (occurrence: None)
  Receive Date: 20100319
  Receipt Date: 20100309
  Transmission Date: 20100710
  Serious: Yes (Life-Threatening, Hospitalization)
  Sender: FDA-Public Use
  Company Number: JP-PFIZER INC-2010012360

PATIENT
  Age: 73 Year
  Sex: Male
  Weight: 62 kg

DRUGS (7)
  1. CELECOX [Suspect]
     Indication: OSTEOARTHRITIS
     Dosage: 100 MG, 2X/DAY
     Route: 048
     Dates: start: 20091217, end: 20100114
  2. MUCOSTA [Suspect]
     Indication: PROPHYLAXIS AGAINST GASTROINTESTINAL ULCER
     Dosage: 100 MG, 3X/DAY
     Route: 048
     Dates: start: 20091217, end: 20100114
  3. NU LOTAN [Concomitant]
     Dosage: UNK
     Route: 048
     Dates: start: 19960101, end: 20100114
  4. WARFARIN [Concomitant]
     Dosage: UNK
     Route: 048
     Dates: start: 19960101, end: 20100114
  5. ARTIST [Concomitant]
     Route: 048
  6. LOXONIN [Concomitant]
     Dosage: UNK
     Route: 062
     Dates: start: 20091217, end: 20100114
  7. MAINTATE [Concomitant]
     Dosage: UNK
     Route: 048
     Dates: start: 19960101, end: 20100114

REACTIONS (1)
  - INTERSTITIAL LUNG DISEASE [None]
